FAERS Safety Report 7513720-7 (Version None)
Quarter: 2011Q2

REPORT INFORMATION
  Report Type: 
  Country: None (occurrence: None)
  Receive Date: 20110531
  Receipt Date: 20110525
  Transmission Date: 20111010
  Serious: Yes (Hospitalization, Other)
  Sender: FDA-Public Use
  Company Number: GXKR2011DE01832

PATIENT
  Age: 31 Year
  Sex: Female
  Weight: 55 kg

DRUGS (5)
  1. ESCITALOPRAM [Suspect]
     Indication: DEPRESSION
     Dosage: 10 MG, QD (GW 0 TO 8.5)
     Route: 048
     Dates: start: 20091001, end: 20091201
  2. MIRTAZAPINE [Suspect]
     Indication: DEPRESSION
     Dosage: 30 MG/DAY UNTIL GW 8.5, REST OF PREGNANCY 15 MG/DAY
     Route: 048
     Dates: start: 20091001, end: 20100612
  3. ACETAMINOPHEN [Concomitant]
     Indication: PAIN
     Dosage: 500 MG, QD (GW 9.2 TO 9.5)
     Route: 048
     Dates: start: 20091205, end: 20091208
  4. AUGMENTAN ORAL [Concomitant]
     Indication: URINARY TRACT INFECTION
     Dosage: 1 DF, BID (GW 9.2 TO 9.3)
     Route: 048
     Dates: start: 20091205, end: 20091206
  5. FOLIC ACID [Concomitant]
     Indication: PROPHYLAXIS OF NEURAL TUBE DEFECT
     Dosage: 0.8 MG/DAY (GW 5 TO 12.6)
     Route: 048

REACTIONS (6)
  - OEDEMA [None]
  - PRE-ECLAMPSIA [None]
  - PROTEINURIA [None]
  - HYPERTENSION [None]
  - DRUG EXPOSURE DURING PREGNANCY [None]
  - PREMATURE BABY [None]
